FAERS Safety Report 5323428-4 (Version None)
Quarter: 2007Q2

REPORT INFORMATION
  Report Type: 
  Country: None (occurrence: None)
  Receive Date: 20070514
  Receipt Date: 20070502
  Transmission Date: 20071010
  Serious: Yes (Disabling, Other)
  Sender: FDA-Public Use
  Company Number: PHHO2007GB04918

PATIENT
  Age: 56 Year

DRUGS (4)
  1. ZOL V ZOL + DOCETAXEL V ZOL + CELECOXIB [Suspect]
     Indication: METASTASES TO BONE
     Dosage: 4MG EVERY 3 WEEKS
     Route: 042
     Dates: start: 20060719, end: 20070121
  2. DOCETAXEL [Suspect]
     Dosage: UNK, UNK
     Route: 042
     Dates: start: 20060719, end: 20061101
  3. ZOLADEX [Concomitant]
     Dates: start: 20060705
  4. PREDNISOLONE [Concomitant]
     Dates: start: 20060719, end: 20061122

REACTIONS (3)
  - BONE DISORDER [None]
  - OSTEONECROSIS [None]
  - PAIN [None]
